FAERS Safety Report 6915248-1 (Version None)
Quarter: 2010Q3

REPORT INFORMATION
  Report Type: 
  Country: None (occurrence: None)
  Receive Date: 20100806
  Receipt Date: 20100806
  Transmission Date: 20110219
  Serious: Yes (Life-Threatening, Hospitalization)
  Sender: FDA-Public Use
  Company Number: None

PATIENT
  Age: 70 Year
  Sex: Male

DRUGS (10)
  1. HEPARIN [Suspect]
     Indication: CATHETERISATION CARDIAC
     Dosage: 3000 UNITS X1 IV BOLUS  (1 DOSE)
     Route: 040
     Dates: start: 20100804, end: 20100804
  2. ASPIRIN [Concomitant]
  3. CELEBREX [Concomitant]
  4. ENALAPRIL MALEATE [Concomitant]
  5. FISH OIL [Concomitant]
  6. GLUCOSAMINE CHONDROITIN [Concomitant]
  7. NEXIUM [Concomitant]
  8. UROXATRAL [Concomitant]
  9. CENTRUM SILVER [Concomitant]
  10. VIAGRA [Concomitant]

REACTIONS (3)
  - ANAPHYLACTIC REACTION [None]
  - ANAPHYLACTOID REACTION [None]
  - CHEST PAIN [None]
